FAERS Safety Report 9161479 (Version 1)
Quarter: 2013Q1

REPORT INFORMATION
  Report Type: Spontaneous
  Country: US (occurrence: US)
  Receive Date: 20130313
  Receipt Date: 20130313
  Transmission Date: 20140127
  Serious: No
  Sender: FDA-Public Use
  Company Number: US-PFIZER INC-2013083189

PATIENT
  Sex: Female

DRUGS (9)
  1. LYRICA [Suspect]
     Dosage: UNK
  2. PREDNISONE [Interacting]
     Dosage: UNK
  3. TRAMADOL HCL [Interacting]
     Dosage: UNK
  4. DICLOFENAC [Interacting]
     Indication: RHEUMATOID ARTHRITIS
     Dosage: 50 MG, 2X/DAY
     Route: 048
     Dates: start: 20130131, end: 20130131
  5. DICLOFENAC [Interacting]
     Dosage: 50 MG, 2X/DAY
     Route: 048
     Dates: start: 20130201, end: 20130201
  6. DICLOFENAC [Interacting]
     Dosage: 50 MG, 1X/DAY
     Route: 048
     Dates: start: 20130202, end: 20130202
  7. ARAVA [Interacting]
     Dosage: UNK
  8. CEPHALEXIN [Interacting]
     Indication: INFECTION
     Dosage: UNK
  9. TRAMADOL/ACETAMINOPHEN [Interacting]
     Dosage: UNK

REACTIONS (5)
  - Drug interaction [Recovering/Resolving]
  - Erythema [Recovering/Resolving]
  - Feeling hot [Recovering/Resolving]
  - Skin exfoliation [Recovering/Resolving]
  - Local swelling [Recovering/Resolving]
